FAERS Safety Report 7003409-5 (Version None)
Quarter: 2010Q3

REPORT INFORMATION
  Report Type: 
  Country: None (occurrence: None)
  Receive Date: 20100920
  Receipt Date: 20100907
  Transmission Date: 20110219
  Serious: No
  Sender: FDA-Public Use
  Company Number: US-PFIZER INC-2010113666

PATIENT
  Sex: Male
  Weight: 76.19 kg

DRUGS (7)
  1. TIKOSYN [Suspect]
     Indication: ATRIAL FIBRILLATION
     Dosage: 0.25 MG, 2X/DAY
     Route: 048
     Dates: start: 20100823
  2. KETOCONAZOLE [Concomitant]
     Indication: FUNGAL INFECTION
     Dosage: UNK
  3. METOPROLOL [Concomitant]
     Indication: HYPERTENSION
     Dosage: 25 MG, 1X/DAY
  4. SIMVASTATIN [Concomitant]
     Indication: BLOOD CHOLESTEROL INCREASED
     Dosage: 20 MG, 1X/DAY
  5. CITALOPRAM [Concomitant]
     Dosage: 20 MG, 1X/DAY
  6. COMBIVENT [Concomitant]
     Indication: CHRONIC OBSTRUCTIVE PULMONARY DISEASE
     Dosage: UNK
  7. MUCINEX [Concomitant]
     Indication: CHRONIC OBSTRUCTIVE PULMONARY DISEASE
     Dosage: UNK

REACTIONS (1)
  - FUNGAL INFECTION [None]
